FAERS Safety Report 16357182 (Version 1)
Quarter: 2019Q2

REPORT INFORMATION
  Report Type: Report from Study
  Country: FR (occurrence: FR)
  Receive Date: 20190527
  Receipt Date: 20190527
  Transmission Date: 20190711
  Serious: Yes (Other)
  Sender: FDA-Public Use
  Company Number: FR-ROCHE-2323692

PATIENT

DRUGS (1)
  1. RITUXIMAB. [Suspect]
     Active Substance: RITUXIMAB
     Indication: ENDOCRINE OPHTHALMOPATHY
     Dosage: TWICE AT A 2-WEEK INTERVAL
     Route: 042

REACTIONS (17)
  - Arthritis [Unknown]
  - Night sweats [Unknown]
  - Infusion related reaction [Unknown]
  - Endocrine ophthalmopathy [Unknown]
  - Nausea [Unknown]
  - Pharyngeal paraesthesia [Unknown]
  - Anxiety [Unknown]
  - Headache [Unknown]
  - Bronchitis [Unknown]
  - Influenza like illness [Unknown]
  - Erythema [Unknown]
  - Gout [Unknown]
  - Hot flush [Unknown]
  - Fatigue [Unknown]
  - Depression [Unknown]
  - Rash [Unknown]
  - Pruritus [Unknown]
